FAERS Safety Report 6879983-6 (Version None)
Quarter: 2010Q3

REPORT INFORMATION
  Report Type: 
  Country: None (occurrence: None)
  Receive Date: 20100728
  Receipt Date: 20100716
  Transmission Date: 20110219
  Serious: Yes (Other)
  Sender: FDA-Public Use
  Company Number: PHHY2010CA47032

PATIENT
  Sex: Female

DRUGS (1)
  1. SANDOSTATIN LAR [Suspect]
     Indication: NEUROENDOCRINE TUMOUR
     Dosage: 20 MG EVERY 4 WEEKS
     Route: 030
     Dates: start: 20100526, end: 20100526

REACTIONS (7)
  - INSOMNIA [None]
  - INTESTINAL OBSTRUCTION [None]
  - LOCALISED INTRAABDOMINAL FLUID COLLECTION [None]
  - NAUSEA [None]
  - PAIN [None]
  - SMALL INTESTINAL RESECTION [None]
  - WOUND INFECTION STAPHYLOCOCCAL [None]
